FAERS Safety Report 9702558 (Version 2)
Quarter: 2013Q4

REPORT INFORMATION
  Report Type: Spontaneous
  Country: US (occurrence: CA)
  Receive Date: 20131121
  Receipt Date: 20131127
  Transmission Date: 20140711
  Serious: Yes (Hospitalization)
  Sender: FDA-Public Use
  Company Number: CA-FRI-1000051531

PATIENT
  Age: 75 Year
  Sex: Female
  Weight: 86 kg

DRUGS (7)
  1. ROFLUMILAST [Suspect]
     Indication: CHRONIC OBSTRUCTIVE PULMONARY DISEASE
     Dosage: 500 MCG
     Route: 048
     Dates: start: 201305, end: 201306
  2. ROFLUMILAST [Suspect]
     Dosage: 500 MCG
     Route: 048
     Dates: start: 20130613, end: 20130808
  3. ATROVENT [Concomitant]
  4. BISOPROLOL [Concomitant]
  5. ADVAIR [Concomitant]
  6. MONTELUKAST [Concomitant]
  7. IPRATROPIUM [Concomitant]

REACTIONS (14)
  - Gastrointestinal haemorrhage [Recovered/Resolved]
  - Cough [Recovered/Resolved]
  - Haematemesis [Unknown]
  - Dyspnoea [Recovered/Resolved]
  - Headache [Unknown]
  - Abdominal pain [Recovering/Resolving]
  - Dysgeusia [Unknown]
  - Nausea [Recovering/Resolving]
  - Haematochezia [Recovering/Resolving]
  - Weight decreased [Recovering/Resolving]
  - Asthenia [Unknown]
  - Insomnia [Unknown]
  - Diarrhoea [Unknown]
  - Decreased appetite [Recovered/Resolved]
